FAERS Safety Report 8175784-X (Version None)
Quarter: 2012Q1

REPORT INFORMATION
  Report Type: 
  Country: None (occurrence: None)
  Receive Date: 20120228
  Receipt Date: 20120223
  Transmission Date: 20120608
  Serious: Yes (Death)
  Sender: FDA-Public Use
  Company Number: 2012TP000015

PATIENT
  Age: 88 Year
  Sex: Female

DRUGS (1)
  1. LIDODERM [Suspect]
     Dosage: ;TOP
     Route: 061

REACTIONS (1)
  - DEATH [None]
